FAERS Safety Report 9949958 (Version 1)
Quarter: 2014Q1

REPORT INFORMATION
  Report Type: Report from Study
  Country: US (occurrence: US)
  Receive Date: 20140304
  Receipt Date: 20140304
  Transmission Date: 20141002
  Serious: No
  Sender: FDA-Public Use
  Company Number: US-ABBVIE-13P-163-1066400-00

PATIENT
  Age: 63 Year
  Sex: Female

DRUGS (11)
  1. HUMIRA [Suspect]
     Indication: CROHN^S DISEASE
     Dates: start: 201003
  2. METFORMIN [Concomitant]
     Indication: DIABETES MELLITUS
  3. GLYBURIDE [Concomitant]
     Indication: DIABETES MELLITUS
  4. OMEPRAZOLE [Concomitant]
     Indication: GASTROOESOPHAGEAL REFLUX DISEASE
  5. SIMVASTATIN [Concomitant]
     Indication: BLOOD CHOLESTEROL INCREASED
  6. ACETAMINOPHEN [Concomitant]
     Indication: PAIN
  7. FUROSEMIDE [Concomitant]
     Indication: DIURETIC THERAPY
  8. ASACOL [Concomitant]
     Indication: CROHN^S DISEASE
  9. VITAMIN D3 [Concomitant]
     Indication: VITAMIN SUPPLEMENTATION
  10. CALCIUM +D [Concomitant]
     Indication: MINERAL SUPPLEMENTATION
     Dosage: 600 IU /400 IU
  11. OMEGA 3 [Concomitant]
     Indication: BLOOD CHOLESTEROL ABNORMAL

REACTIONS (3)
  - Drug dose omission [Not Recovered/Not Resolved]
  - Incorrect dose administered [Unknown]
  - Confusional state [Not Recovered/Not Resolved]
